FAERS Safety Report 5546049-7 (Version None)
Quarter: 2007Q4

REPORT INFORMATION
  Report Type: 
  Country: None (occurrence: None)
  Receive Date: 20071211
  Receipt Date: 20070905
  Transmission Date: 20080405
  Serious: No
  Sender: FDA-Public Use
  Company Number: US-BRISTOL-MYERS SQUIBB COMPANY-13898713

PATIENT
  Age: 66 Year
  Sex: Female
  Weight: 65 kg

DRUGS (4)
  1. EMSAM [Suspect]
     Indication: DEPRESSION
     Dosage: PATIENT ALSO USED 6MG/24HR AND 9MG/24HR PATCHES .
     Route: 062
  2. ALPRAZOLAM [Concomitant]
  3. DIOVAN HCT [Concomitant]
  4. LEVOXYL [Concomitant]

REACTIONS (2)
  - APPLICATION SITE REACTION [None]
  - DRUG INEFFECTIVE [None]
